FAERS Safety Report 9647008 (Version 2)
Quarter: 2013Q4

REPORT INFORMATION
  Report Type: Spontaneous
  Country: US (occurrence: US)
  Receive Date: 20131027
  Receipt Date: 20131027
  Transmission Date: 20140711
  Serious: No
  Sender: FDA-Public Use
  Company Number: US-PURDUE-USA-2013-0102465

PATIENT
  Sex: Male
  Weight: 90.7 kg

DRUGS (3)
  1. OXYCONTIN (NDA 22-272) [Suspect]
     Dosage: 80 MG, DAILY 6 TABLETS AM AND 5 TABLETS PM
     Route: 048
     Dates: start: 2008
  2. VALIUM                             /00017001/ [Concomitant]
     Indication: PRODUCT USED FOR UNKNOWN INDICATION
     Dosage: 10 MG, UNK
     Route: 048
  3. XANAX [Concomitant]
     Indication: PRODUCT USED FOR UNKNOWN INDICATION
     Dosage: 5 MG, UNK
     Route: 048

REACTIONS (2)
  - Pulmonary mass [Recovered/Resolved]
  - Sciatica [Recovered/Resolved]
